FAERS Safety Report 4455819-8 (Version None)
Quarter: 2004Q3

REPORT INFORMATION
  Report Type: 
  Country: None (occurrence: None)
  Receive Date: 20040920
  Receipt Date: 20040908
  Transmission Date: 20050211
  Serious: Yes (Death)
  Sender: FDA-Public Use
  Company Number: 318

PATIENT
  Age: 21 Year
  Sex: Male
  Weight: 90.7194 kg

DRUGS (1)
  1. FLUOXETINE CAPSULES USP 20 MG (ALPHAPHARM PTY LTD) [Suspect]
     Indication: DEPRESSION
     Dosage: ORAL - 3 X 20 MG CAPS/DAY
     Route: 048
     Dates: start: 20020305, end: 20040529

REACTIONS (3)
  - DRUG TOXICITY [None]
  - DYSPNOEA [None]
  - FALL [None]
